FAERS Safety Report 20155338 (Version 3)
Quarter: 2022Q1

REPORT INFORMATION
  Report Type: Other
  Country: US (occurrence: None)
  Receive Date: 20211207
  Receipt Date: 20220202
  Transmission Date: 20220423
  Serious: Yes (Other)
  Sender: FDA-Public Use
  Company Number: US-ROCHE-2965710

PATIENT
  Sex: Female

DRUGS (2)
  1. OCREVUS [Suspect]
     Active Substance: OCRELIZUMAB
     Indication: Multiple sclerosis
     Route: 065
  2. VALIUM [Concomitant]
     Active Substance: DIAZEPAM
     Route: 048

REACTIONS (17)
  - Spinal osteoarthritis [Unknown]
  - Myelopathy [Unknown]
  - Vitamin D deficiency [Unknown]
  - Sensory disturbance [Unknown]
  - Swollen tongue [Unknown]
  - Lip swelling [Unknown]
  - Paraesthesia [Unknown]
  - Eye pain [Unknown]
  - Carpal tunnel syndrome [Unknown]
  - Vitamin B12 decreased [Unknown]
  - Tachycardia [Unknown]
  - Chest pain [Unknown]
  - JC polyomavirus test positive [Unknown]
  - Brain scan abnormal [Unknown]
  - Vitamin B12 deficiency [Unknown]
  - Vitamin D abnormal [Unknown]
  - COVID-19 [Unknown]
